FAERS Safety Report 6793100-2 (Version None)
Quarter: 2010Q2

REPORT INFORMATION
  Report Type: 
  Country: None (occurrence: None)
  Receive Date: 20100624
  Receipt Date: 20090629
  Transmission Date: 20101027
  Serious: Yes (Other)
  Sender: FDA-Public Use
  Company Number: US-MYLANLABS-2009S1007220

PATIENT
  Age: 55 Year
  Sex: Male

DRUGS (2)
  1. CLOZAPINE [Suspect]
     Indication: SCHIZOPHRENIA
     Dates: start: 19990101, end: 20090101
  2. CLOZAPINE [Suspect]
     Dates: start: 20090101

REACTIONS (1)
  - GRANULOCYTOPENIA [None]
